FAERS Safety Report 22374983 (Version 1)
Quarter: 2023Q2

REPORT INFORMATION
  Report Type: Spontaneous
  Country: LV (occurrence: LV)
  Receive Date: 20230527
  Receipt Date: 20230527
  Transmission Date: 20230722
  Serious: Yes (Hospitalization, Other)
  Sender: FDA-Public Use
  Company Number: LV-NOVITIUMPHARMA-2023LVNVP00777

PATIENT
  Age: 66 Year
  Sex: Female

DRUGS (2)
  1. DEXAMETHASONE [Suspect]
     Active Substance: DEXAMETHASONE
     Indication: COVID-19 pneumonia
     Route: 048
  2. HEPARIN [Concomitant]
     Active Substance: HEPARIN SODIUM
     Indication: COVID-19 pneumonia

REACTIONS (3)
  - Staphylococcal bacteraemia [Unknown]
  - Extradural abscess [Recovered/Resolved]
  - Off label use [Unknown]
